FAERS Safety Report 9827414 (Version 1)
Quarter: 2013Q4

REPORT INFORMATION
  Report Type: Spontaneous
  Country: US (occurrence: None)
  Receive Date: 20131115
  Receipt Date: 20131115
  Transmission Date: 20140711
  Serious: Yes (Other)
  Sender: FDA-Public Use
  Company Number: 2013P1002760

PATIENT
  Age: 65 Year
  Sex: Female

DRUGS (1)
  1. DURAMORPH [Suspect]
     Indication: SURGERY
     Route: 008
     Dates: start: 20130225, end: 20130225

REACTIONS (3)
  - Hypothermia [None]
  - Hypohidrosis [None]
  - Blood glucose abnormal [None]
